FAERS Safety Report 8300848-7 (Version None)
Quarter: 2012Q1

REPORT INFORMATION
  Report Type: 
  Country: None (occurrence: None)
  Receive Date: 20120326
  Receipt Date: 20110809
  Transmission Date: 20120608
  Serious: Yes (Other)
  Sender: FDA-Public Use
  Company Number: PHHY2011US58942

PATIENT
  Sex: Female

DRUGS (7)
  1. ATENOLOL [Concomitant]
  2. AMLODIPINE [Concomitant]
  3. ASPIRIN [Concomitant]
  4. SIMVASTATIN [Concomitant]
  5. HYDROXYBUTYLOXIDE (HYDROXYBUTYLOXIDE) [Concomitant]
  6. TASIGNA [Suspect]
     Indication: CHRONIC MYELOID LEUKAEMIA
     Dosage: 400 MG, BID, ORAL ; 200 MG, BID
     Route: 048
     Dates: start: 20110503
  7. TASIGNA [Suspect]
     Indication: CHRONIC MYELOID LEUKAEMIA
     Dosage: 400 MG, BID, ORAL ; 200 MG, BID
     Route: 048
     Dates: start: 20110720, end: 20110730

REACTIONS (4)
  - PLATELET COUNT DECREASED [None]
  - FATIGUE [None]
  - WHITE BLOOD CELL COUNT DECREASED [None]
  - ELECTROCARDIOGRAM QT PROLONGED [None]
